FAERS Safety Report 13271940 (Version 2)
Quarter: 2017Q2

REPORT INFORMATION
  Report Type: Spontaneous
  Country: BR (occurrence: BR)
  Receive Date: 20170227
  Receipt Date: 20170413
  Transmission Date: 20170830
  Serious: Yes (Life-Threatening)
  Sender: FDA-Public Use
  Company Number: BR-SUN PHARMACEUTICAL INDUSTRIES LTD-2017R1-134405

PATIENT
  Age: 21 Year
  Sex: Female
  Weight: 72 kg

DRUGS (13)
  1. ENALAPRIL [Concomitant]
     Active Substance: ENALAPRIL
     Indication: HYPERTENSION
     Dosage: UNK
     Route: 065
  2. GLUCOSE [Concomitant]
     Active Substance: DEXTROSE
     Indication: HYPOKALAEMIA
  3. SPIRONOLACTONE. [Concomitant]
     Active Substance: SPIRONOLACTONE
     Indication: HYPERTENSION
     Dosage: UNK
     Route: 065
  4. CISPLATIN. [Suspect]
     Active Substance: CISPLATIN
     Indication: ADRENOCORTICAL CARCINOMA
     Dosage: 1 CYCLE
     Route: 065
  5. OCTREOTIDE. [Concomitant]
     Active Substance: OCTREOTIDE
     Indication: HYPOGLYCAEMIA
     Dosage: UNK
     Route: 065
  6. DOXORUBICIN [Suspect]
     Active Substance: DOXORUBICIN
     Indication: ADRENOCORTICAL CARCINOMA
     Dosage: 1 CYCLE
     Route: 065
  7. MITOTANE [Suspect]
     Active Substance: MITOTANE
     Indication: ADRENOCORTICAL CARCINOMA
     Dosage: 1 CYCLE
     Route: 065
  8. AMLODIPINE [Concomitant]
     Active Substance: AMLODIPINE BESYLATE
     Indication: HYPERTENSION
     Dosage: UNK
     Route: 065
  9. GLUCAGON. [Concomitant]
     Active Substance: GLUCAGON
     Indication: HYPOGLYCAEMIA
     Dosage: UNK
     Route: 065
  10. HYDRALAZINE [Concomitant]
     Active Substance: HYDRALAZINE HYDROCHLORIDE
     Indication: HYPERTENSION
     Dosage: UNK
     Route: 065
  11. POTASSIUM [Concomitant]
     Active Substance: POTASSIUM
     Indication: HYPOKALAEMIA
     Dosage: UNK
     Route: 042
  12. ETOPOSIDE. [Suspect]
     Active Substance: ETOPOSIDE
     Indication: ADRENOCORTICAL CARCINOMA
     Dosage: 1 CYCLE
     Route: 065
  13. GLUCOSE [Concomitant]
     Active Substance: DEXTROSE
     Indication: HYPOKALAEMIA
     Dosage: UNK
     Route: 042

REACTIONS (1)
  - Drug ineffective [Unknown]
